FAERS Safety Report 8131654 (Version 2)
Quarter: 2014Q1

REPORT INFORMATION
  Report Type: Report from Study
  Country: US (occurrence: US)
  Receive Date: 20110912
  Receipt Date: 20140313
  Transmission Date: 20141002
  Serious: Yes (Hospitalization)
  Sender: FDA-Public Use
  Company Number: PHHO2011US06970

PATIENT
  Age: 73 Year
  Sex: Male
  Weight: 84.4 kg

DRUGS (2)
  1. PLACEBO [Suspect]
     Indication: HEPATOCELLULAR CARCINOMA
     Route: 048
     Dates: start: 20110304, end: 20110414
  2. AMOXICILLIN [Suspect]
     Indication: UPPER RESPIRATORY TRACT INFECTION
     Dosage: 500 MG, TID
     Dates: start: 20110409, end: 20110414

REACTIONS (3)
  - Abdominal pain [Not Recovered/Not Resolved]
  - Hyperbilirubinaemia [Not Recovered/Not Resolved]
  - Jaundice cholestatic [Not Recovered/Not Resolved]
